FAERS Safety Report 10662432 (Version 1)
Quarter: 2014Q4

REPORT INFORMATION
  Report Type: Spontaneous
  Country: CH (occurrence: CH)
  Receive Date: 20141218
  Receipt Date: 20141218
  Transmission Date: 20150529
  Serious: Yes (Death, Hospitalization)
  Sender: FDA-Public Use
  Company Number: CH-TEVA-528672ISR

PATIENT
  Age: 65 Year
  Sex: Female

DRUGS (5)
  1. TRAMADOL RETARD [Concomitant]
     Active Substance: TRAMADOL
     Indication: PAIN
     Dosage: LONG TERM
     Route: 048
  2. IRFEN [Suspect]
     Active Substance: IBUPROFEN
     Indication: PAIN
     Dosage: LONG TERM
     Route: 048
  3. FAMPYRA [Suspect]
     Active Substance: DALFAMPRIDINE
     Indication: SECONDARY PROGRESSIVE MULTIPLE SCLEROSIS
     Route: 048
     Dates: start: 20141113, end: 201411
  4. SIRDALUD [Concomitant]
     Active Substance: TIZANIDINE
     Indication: MUSCLE SPASMS
     Dosage: 12 MILLIGRAM DAILY; LONG TERM
     Route: 048
  5. NEXIUM [Concomitant]
     Active Substance: ESOMEPRAZOLE MAGNESIUM
     Route: 048

REACTIONS (14)
  - Bedridden [Fatal]
  - Pain in extremity [Unknown]
  - Cardiac failure [Fatal]
  - Asthenia [Fatal]
  - Cardiogenic shock [Fatal]
  - Myocardial ischaemia [Fatal]
  - Multi-organ failure [Fatal]
  - Acute hepatic failure [Fatal]
  - Interventricular septum rupture [Fatal]
  - Dehydration [Fatal]
  - Chest pain [Unknown]
  - Acute kidney injury [Fatal]
  - Failure to thrive [Fatal]
  - Anuria [Fatal]

NARRATIVE: CASE EVENT DATE: 201411
